FAERS Safety Report 8482487-0 (Version None)
Quarter: 2012Q3

REPORT INFORMATION
  Report Type: 
  Country: None (occurrence: None)
  Receive Date: 20120702
  Receipt Date: 20120613
  Transmission Date: 20120928
  Serious: Yes (Other)
  Sender: FDA-Public Use
  Company Number: CHPA2012US013016

PATIENT
  Age: 68 Year
  Sex: Male

DRUGS (1)
  1. EXCEDRIN EXTRA STRENGTH TABLETS [Suspect]
     Indication: PAIN
     Dosage: UNK, UNK
     Route: 048

REACTIONS (4)
  - HEADACHE [None]
  - EPISTAXIS [None]
  - BLOOD CHOLESTEROL INCREASED [None]
  - ARTERIAL OCCLUSIVE DISEASE [None]
